FAERS Safety Report 8166259-2 (Version None)
Quarter: 2012Q1

REPORT INFORMATION
  Report Type: 
  Country: None (occurrence: None)
  Receive Date: 20120227
  Receipt Date: 20110518
  Transmission Date: 20120608
  Serious: No
  Sender: FDA-Public Use
  Company Number: US-MYLANLABS-2011S1010514

PATIENT
  Age: 28 Year
  Sex: Male

DRUGS (3)
  1. LITHIUM CARBONATE [Concomitant]
  2. ZYPREXA [Concomitant]
  3. AMNESTEEM [Suspect]
     Indication: ACNE
     Route: 048
     Dates: start: 20110414, end: 20110504

REACTIONS (2)
  - MANIA [None]
  - MOOD ALTERED [None]
